FAERS Safety Report 9633881 (Version 2)
Quarter: 2013Q4

REPORT INFORMATION
  Report Type: Report from Study
  Country: US (occurrence: US)
  Receive Date: 20131021
  Receipt Date: 20131029
  Transmission Date: 20140711
  Serious: Yes (Other)
  Sender: FDA-Public Use
  Company Number: US-JNJFOC-20131009453

PATIENT
  Sex: Female

DRUGS (8)
  1. INVEGA [Suspect]
     Indication: PSYCHOTIC DISORDER
     Dosage: 3MG IN THE MORNING AND 6 MG AT BED TIME.
     Route: 048
  2. INVEGA [Suspect]
     Indication: PSYCHOTIC DISORDER
     Dosage: ONCE IN THE MORNING AND EVENING.
     Route: 048
     Dates: start: 20130923, end: 20131007
  3. INVEGA SUSTENNA [Suspect]
     Indication: PSYCHOTIC DISORDER
     Route: 030
     Dates: start: 20130924
  4. INVEGA SUSTENNA [Suspect]
     Indication: PSYCHOTIC DISORDER
     Route: 030
  5. COGENTIN [Suspect]
     Indication: PRODUCT USED FOR UNKNOWN INDICATION
     Route: 048
     Dates: start: 20130923
  6. KLONOPIN [Suspect]
     Indication: ANXIETY
     Route: 048
     Dates: start: 20130923
  7. VISTARIL [Suspect]
     Indication: ANXIETY
     Route: 048
     Dates: start: 20130923
  8. ZYPREXA [Concomitant]
     Indication: PSYCHOTIC DISORDER
     Route: 065

REACTIONS (4)
  - Hallucination, auditory [Recovering/Resolving]
  - Negative thoughts [Recovering/Resolving]
  - Anxiety [Unknown]
  - Inappropriate schedule of drug administration [Unknown]
